FAERS Safety Report 11769589 (Version 1)
Quarter: 2015Q4

REPORT INFORMATION
  Report Type: Spontaneous
  Country: ES (occurrence: ES)
  Receive Date: 20151123
  Receipt Date: 20151123
  Transmission Date: 20160304
  Serious: Yes (Other)
  Sender: FDA-Public Use
  Company Number: ES-BAYER-2015-465644

PATIENT
  Age: 43 Year
  Sex: Male

DRUGS (3)
  1. ACTIRA [Suspect]
     Active Substance: MOXIFLOXACIN HYDROCHLORIDE
     Indication: PRODUCT USED FOR UNKNOWN INDICATION
     Dosage: UNK
     Route: 065
     Dates: start: 20151030
  2. FLUIDASA [Suspect]
     Active Substance: PYRILAMINE
     Indication: ASTHMA
     Dosage: UNK
     Route: 065
     Dates: start: 20151030
  3. PARACETAMOL [Suspect]
     Active Substance: ACETAMINOPHEN
     Indication: ASTHMA
     Dosage: UNK
     Route: 065
     Dates: start: 20151030

REACTIONS (3)
  - Face oedema [Unknown]
  - Respiratory distress [Unknown]
  - Paraesthesia oral [Unknown]

NARRATIVE: CASE EVENT DATE: 20151030
